FAERS Safety Report 5482597-6 (Version None)
Quarter: 2007Q4

REPORT INFORMATION
  Report Type: 
  Country: None (occurrence: None)
  Receive Date: 20071011
  Receipt Date: 20070912
  Transmission Date: 20080405
  Serious: No
  Sender: FDA-Public Use
  Company Number: A0668359A

PATIENT
  Age: 54 Year
  Sex: Female

DRUGS (9)
  1. TYKERB [Suspect]
     Dosage: 1250MG PER DAY
     Route: 048
     Dates: start: 20070621, end: 20070814
  2. DECADRON [Concomitant]
  3. SENNA [Concomitant]
  4. ATIVAN [Concomitant]
  5. FAMOTIDINE [Concomitant]
  6. TRAZODONE HCL [Concomitant]
  7. HALOPERIDOL [Concomitant]
  8. REGLAN [Concomitant]
  9. VICODIN [Concomitant]

REACTIONS (6)
  - BALANCE DISORDER [None]
  - FATIGUE [None]
  - FEELING JITTERY [None]
  - GAIT DISTURBANCE [None]
  - HEADACHE [None]
  - MUSCULAR WEAKNESS [None]
